FAERS Safety Report 8157550-4 (Version None)
Quarter: 2012Q1

REPORT INFORMATION
  Report Type: 
  Country: None (occurrence: None)
  Receive Date: 20120222
  Receipt Date: 20111003
  Transmission Date: 20120608
  Serious: No
  Sender: FDA-Public Use
  Company Number: US-ASTRAZENECA-1994UW17716

PATIENT
  Age: 55 Year
  Sex: Female
  Weight: 62.6 kg

DRUGS (4)
  1. TENORMIN [Suspect]
     Indication: ARRHYTHMIA
     Route: 048
     Dates: start: 19930101
  2. TENORMIN [Suspect]
     Indication: VENTRICULAR EXTRASYSTOLES
     Route: 048
     Dates: start: 19930101
  3. TENORMIN [Suspect]
     Route: 048
     Dates: start: 19930101
  4. TENORMIN [Suspect]
     Route: 048
     Dates: start: 19930101

REACTIONS (3)
  - EXTRASYSTOLES [None]
  - ASTHENIA [None]
  - THERAPEUTIC PRODUCT INEFFECTIVE [None]
